FAERS Safety Report 5535201-2 (Version None)
Quarter: 2007Q4

REPORT INFORMATION
  Report Type: 
  Country: None (occurrence: None)
  Receive Date: 20071206
  Receipt Date: 20071127
  Transmission Date: 20080405
  Serious: Yes (Other)
  Sender: FDA-Public Use
  Company Number: PHHY2007BR00683

PATIENT
  Age: 77 Year
  Sex: Female

DRUGS (3)
  1. PHENOBARBITAL TAB [Concomitant]
     Indication: EPILEPSY
     Dosage: 150 MG/ DAY
     Route: 048
     Dates: start: 19870101
  2. FORASEQ [Suspect]
     Indication: ASTHMA
     Dosage: 12/400 MCG 2 TIMES A DAY
     Dates: start: 20070801
  3. FORASEQ [Suspect]
     Dosage: 12/400 MCG 2 TIMES A DAY

REACTIONS (3)
  - ASTHMA [None]
  - CONVULSION [None]
  - TACHYCARDIA [None]
